FAERS Safety Report 8108200-4 (Version None)
Quarter: 2012Q1

REPORT INFORMATION
  Report Type: 
  Country: None (occurrence: None)
  Receive Date: 20120202
  Receipt Date: 20120120
  Transmission Date: 20120608
  Serious: Yes (Other)
  Sender: FDA-Public Use
  Company Number: CA-JNJFOC-20120200505

PATIENT
  Sex: Female

DRUGS (1)
  1. REMICADE [Suspect]
     Indication: CROHN'S DISEASE
     Dosage: STOPPED IN AUG OR SEP-2011
     Route: 042
     Dates: end: 20110101

REACTIONS (2)
  - FISTULA [None]
  - DRUG INEFFECTIVE [None]
